FAERS Safety Report 21343373 (Version 1)
Quarter: 2022Q3

REPORT INFORMATION
  Report Type: Spontaneous
  Country: AT (occurrence: AT)
  Receive Date: 20220916
  Receipt Date: 20220916
  Transmission Date: 20221027
  Serious: Yes (Death, Life-Threatening, Hospitalization)
  Sender: FDA-Public Use
  Company Number: None

PATIENT
  Age: 56 Year
  Sex: Male

DRUGS (12)
  1. CIPROFLOXACIN [Suspect]
     Active Substance: CIPROFLOXACIN
     Indication: Erysipelas
     Dosage: UNIT DOSE : 1 DOSAGE FORM , FREQUENCY TIME : 12 HOURS , DURATION : 10 DAYS , STRENGTH  : 500 MG
     Route: 065
     Dates: start: 20220701, end: 20220711
  2. CLINDAMYCIN PHOSPHATE [Suspect]
     Active Substance: CLINDAMYCIN PHOSPHATE
     Indication: Erysipelas
     Dosage: 1-1-1 FOR AT LEAST 14D , DURATION : 1 MONTHS
     Route: 065
     Dates: start: 20220625, end: 202207
  3. CEPHALEXIN [Suspect]
     Active Substance: CEPHALEXIN
     Indication: Erysipelas
     Dosage: THERAPY START DATE  : NASK
     Route: 065
     Dates: end: 20220624
  4. AUGMENTIN [Suspect]
     Active Substance: AMOXICILLIN\CLAVULANATE POTASSIUM
     Indication: Erysipelas
     Dosage: NOT PRECISELY ASCERTAINABLE , THERAPY END DATE : NASK
     Route: 065
     Dates: start: 202206
  5. ASPIRIN [Concomitant]
     Active Substance: ASPIRIN
     Indication: Product used for unknown indication
     Dosage: STRENGTH : 100 MG
  6. ASPIRIN PLUS C [Concomitant]
     Active Substance: ASCORBIC ACID\ASPIRIN
     Indication: Product used for unknown indication
  7. METAMIZOLE [Concomitant]
     Active Substance: METAMIZOLE
     Indication: Product used for unknown indication
  8. TRAMADOL [Concomitant]
     Active Substance: TRAMADOL
     Indication: Product used for unknown indication
     Dosage: STRENGTH : 50 MG
  9. FUROSEMIDE [Concomitant]
     Active Substance: FUROSEMIDE
     Indication: Product used for unknown indication
     Dosage: STRENGTH : 40 MG
  10. LANTUS [Concomitant]
     Active Substance: INSULIN GLARGINE
     Indication: Product used for unknown indication
  11. HUMALOG [Concomitant]
     Active Substance: INSULIN LISPRO
     Indication: Product used for unknown indication
  12. NEUROBION FORTE [Concomitant]
     Active Substance: CYANOCOBALAMIN\PYRIDOXINE HYDROCHLORIDE\THIAMINE DISULFIDE
     Indication: Product used for unknown indication

REACTIONS (7)
  - Drug-induced liver injury [Fatal]
  - Acute hepatic failure [Fatal]
  - Acute kidney injury [Not Recovered/Not Resolved]
  - Liver disorder [Not Recovered/Not Resolved]
  - Hepatorenal syndrome [Not Recovered/Not Resolved]
  - Primary biliary cholangitis [Not Recovered/Not Resolved]
  - Hepatic encephalopathy [Fatal]

NARRATIVE: CASE EVENT DATE: 20220701
